FAERS Safety Report 7766937-0 (Version None)
Quarter: 2011Q3

REPORT INFORMATION
  Report Type: 
  Country: None (occurrence: None)
  Receive Date: 20110922
  Receipt Date: 20110910
  Transmission Date: 20111222
  Serious: No
  Sender: FDA-Public Use
  Company Number: US-B.I. PHARMACEUTICALS,INC./RIDGEFIELD-2011-BP-21949BP

PATIENT
  Age: 75 Year
  Sex: Male

DRUGS (8)
  1. COREG [Concomitant]
     Indication: BLOOD CHOLESTEROL INCREASED
     Dates: start: 20060101
  2. LISINOPRIL [Concomitant]
     Indication: HYPERTENSION
     Dates: start: 19990101
  3. FUROSEMIDE [Concomitant]
     Indication: CARDIAC FAILURE CONGESTIVE
     Dates: start: 20060101
  4. PRADAXA [Suspect]
     Indication: ATRIAL FIBRILLATION
     Dosage: 300 MG
     Route: 048
     Dates: start: 20110810
  5. LIPITOR [Concomitant]
     Indication: BLOOD CHOLESTEROL INCREASED
     Dates: start: 20060101
  6. HUMALOG [Concomitant]
     Indication: DIABETES MELLITUS
     Dates: start: 19990101
  7. KLOR-CON [Concomitant]
     Indication: CARDIAC FAILURE CONGESTIVE
     Dates: start: 20060101
  8. MIRAPEX [Concomitant]
     Indication: MUSCLE SPASMS

REACTIONS (3)
  - DIARRHOEA [None]
  - MELAENA [None]
  - BACK PAIN [None]
